FAERS Safety Report 13124443 (Version 1)
Quarter: 2017Q1

REPORT INFORMATION
  Report Type: Spontaneous
  Country: US (occurrence: US)
  Receive Date: 20170118
  Receipt Date: 20170118
  Transmission Date: 20170428
  Serious: Yes (Other)
  Sender: FDA-Public Use
  Company Number: US-PFIZER INC-2017014345

PATIENT
  Age: 58 Year
  Sex: Female
  Weight: 51 kg

DRUGS (6)
  1. PREMPRO [Suspect]
     Active Substance: ESTROGENS, CONJUGATED\MEDROXYPROGESTERONE ACETATE
     Indication: HORMONE REPLACEMENT THERAPY
     Dosage: UNK
     Dates: end: 2016
  2. METHOTREXATE. [Concomitant]
     Active Substance: METHOTREXATE
     Indication: RHEUMATOID ARTHRITIS
     Dosage: UNK
     Dates: start: 2012
  3. PREMPHASE [Suspect]
     Active Substance: ESTROGENS, CONJUGATED\MEDROXYPROGESTERONE ACETATE
     Indication: HORMONE REPLACEMENT THERAPY
     Dosage: UNK
  4. HUMIRA [Suspect]
     Active Substance: ADALIMUMAB
     Indication: RHEUMATOID ARTHRITIS
     Dosage: 40 MG, CYCLIC (40 MG,1 IN 2 WK)
     Route: 058
     Dates: start: 201405
  5. FOLIC ACID. [Concomitant]
     Active Substance: FOLIC ACID
     Indication: VITAMIN SUPPLEMENTATION
     Dosage: UNK
  6. CALCIUM [Concomitant]
     Active Substance: CALCIUM
     Dosage: UNK

REACTIONS (3)
  - Aspartate aminotransferase increased [Not Recovered/Not Resolved]
  - Invasive ductal breast carcinoma [Not Recovered/Not Resolved]
  - Breast tenderness [Unknown]

NARRATIVE: CASE EVENT DATE: 20160809
